FAERS Safety Report 11777076 (Version 1)
Quarter: 2015Q4

REPORT INFORMATION
  Report Type: Spontaneous
  Country: US (occurrence: US)
  Receive Date: 20151125
  Receipt Date: 20151125
  Transmission Date: 20160304
  Serious: No
  Sender: FDA-Public Use
  Company Number: US-TEVA-583029USA

PATIENT
  Age: 72 Year
  Sex: Female

DRUGS (1)
  1. AMIODARONE [Suspect]
     Active Substance: AMIODARONE
     Indication: ATRIAL FIBRILLATION
     Dosage: 100 MILLIGRAM DAILY;
     Route: 065
     Dates: start: 20150714, end: 20150718

REACTIONS (3)
  - Pruritus generalised [Unknown]
  - Product substitution issue [Unknown]
  - Urticaria [Unknown]

NARRATIVE: CASE EVENT DATE: 201507
